FAERS Safety Report 6067836-5 (Version None)
Quarter: 2009Q1

REPORT INFORMATION
  Report Type: 
  Country: None (occurrence: None)
  Receive Date: 20090202
  Receipt Date: 20090123
  Transmission Date: 20090719
  Serious: No
  Sender: FDA-Public Use
  Company Number: 20096136

PATIENT
  Sex: Female

DRUGS (2)
  1. LIORESAL [Suspect]
     Indication: MUSCLE SPASTICITY
     Dosage: APPROXIMATELY 700 MCG, DAILY INTRA
  2. COUMADIN [Concomitant]

REACTIONS (8)
  - CATHETER SITE HAEMORRHAGE [None]
  - DRUG DELIVERY SYSTEM MALFUNCTION [None]
  - HAEMATOMA [None]
  - IMPLANT SITE PAIN [None]
  - INFLUENZA LIKE ILLNESS [None]
  - MUSCLE SPASTICITY [None]
  - PYREXIA [None]
  - UNDERDOSE [None]
